FAERS Safety Report 8395340-8 (Version None)
Quarter: 2012Q2

REPORT INFORMATION
  Report Type: 
  Country: None (occurrence: None)
  Receive Date: 20120530
  Receipt Date: 20120521
  Transmission Date: 20120825
  Serious: Yes (Other)
  Sender: FDA-Public Use
  Company Number: US-ASTRAZENECA-2012SE32877

PATIENT
  Age: 61 Year
  Sex: Female

DRUGS (18)
  1. PERCOCET [Concomitant]
     Indication: BACK PAIN
     Dosage: 5-325 MG ONE THREE TIMES DAILY, AS NEEDED
     Route: 048
     Dates: start: 20120510
  2. VENTOLIN HFA [Concomitant]
     Dosage: 2 PUFFS EVERY 4-6 HOURS AS NEEDED FOR 90 DAYS
     Route: 055
     Dates: start: 20120124
  3. MECLIZINE HCL [Concomitant]
     Route: 048
  4. AMITRIPTYLINE HCL [Concomitant]
     Route: 048
     Dates: start: 20120510
  5. NEURONTIN [Concomitant]
     Route: 048
     Dates: start: 20120327
  6. FUROSEMIDE [Concomitant]
     Dosage: FOR 30 DAYS
     Route: 048
     Dates: start: 20120124
  7. ASPIRIN CHILDREN [Concomitant]
     Route: 048
     Dates: start: 20120116
  8. ALBUTEROL SULFATE [Concomitant]
     Indication: WHEEZING
     Dosage: (2.5 MG/3ML)0.083% EVERY 4-6 HOURS AS NEEDED
     Route: 055
     Dates: start: 20120124
  9. LISINOPRIL [Suspect]
     Route: 048
     Dates: start: 20120116
  10. CYMBALTA [Concomitant]
     Route: 048
     Dates: start: 20120510
  11. FLEXERIL [Concomitant]
     Indication: BACK PAIN
     Route: 048
     Dates: start: 20120510
  12. SIMVASTATIN [Concomitant]
     Route: 048
     Dates: start: 20120224
  13. NEXIUM [Suspect]
     Route: 048
     Dates: start: 20110614
  14. DULERA [Concomitant]
     Dosage: 100-5 MCG/ACT 2 PUFFS THREE TIMES DAILY FOR 90 DAYS
     Route: 055
     Dates: start: 20110525
  15. DICLOFENAC SODIUM [Concomitant]
     Indication: BACK PAIN
     Route: 048
  16. LORAZEPAM [Concomitant]
     Indication: ANXIETY
     Route: 048
     Dates: start: 20120510
  17. CYMBALTA [Concomitant]
     Dosage: FOR SEVEN DAYS
     Route: 048
     Dates: start: 20120510
  18. ALBUTEROL SULFATE [Concomitant]
     Indication: DYSPNOEA
     Dosage: (2.5 MG/3ML)0.083% EVERY 4-6 HOURS AS NEEDED
     Route: 055
     Dates: start: 20120124

REACTIONS (13)
  - GENERALISED ANXIETY DISORDER [None]
  - BACK PAIN [None]
  - DYSPNOEA EXERTIONAL [None]
  - POLYMYALGIA RHEUMATICA [None]
  - HYPERLIPIDAEMIA [None]
  - TRANSIENT ISCHAEMIC ATTACK [None]
  - ACUTE SINUSITIS [None]
  - CYSTITIS [None]
  - MYOSITIS [None]
  - ASTHMA [None]
  - BARRETT'S OESOPHAGUS [None]
  - ESSENTIAL HYPERTENSION [None]
  - MYALGIA [None]
